FAERS Safety Report 19206803 (Version 1)
Quarter: 2021Q2

REPORT INFORMATION
  Report Type: Spontaneous
  Country: US (occurrence: US)
  Receive Date: 20210503
  Receipt Date: 20210503
  Transmission Date: 20210717
  Serious: Yes (Hospitalization, Other)
  Sender: FDA-Public Use
  Company Number: US-SA-2021SA135851

PATIENT
  Age: 26 Year
  Sex: Female
  Weight: 48 kg

DRUGS (2)
  1. MAGNESIUM SULFATE. [Concomitant]
     Active Substance: MAGNESIUM SULFATE
     Indication: UTERINE CONTRACTIONS DURING PREGNANCY
     Dosage: UNK
  2. LOVENOX [Suspect]
     Active Substance: ENOXAPARIN SODIUM
     Dosage: UNK

REACTIONS (20)
  - Anaemia [Recovering/Resolving]
  - Abdominal pain [Unknown]
  - Haematocrit decreased [Recovering/Resolving]
  - Condition aggravated [Recovering/Resolving]
  - Atrioventricular block complete [Unknown]
  - Medical device site laceration [Unknown]
  - Uterine contractions during pregnancy [Unknown]
  - Chordae tendinae rupture [Recovering/Resolving]
  - Atrial fibrillation [Recovering/Resolving]
  - Dyspnoea [Unknown]
  - Splenic infarction [Unknown]
  - Exposure during pregnancy [Recovering/Resolving]
  - Intracardiac thrombus [Unknown]
  - Renal infarct [Unknown]
  - Myxomatous mitral valve degeneration [Recovering/Resolving]
  - Embolism [Unknown]
  - Mitral valve incompetence [Recovering/Resolving]
  - Mitral valve disease [Recovering/Resolving]
  - General physical health deterioration [Recovering/Resolving]
  - Haemorrhage [Unknown]

NARRATIVE: CASE EVENT DATE: 20040602
